FAERS Safety Report 12896410 (Version 1)
Quarter: 2016Q4

REPORT INFORMATION
  Report Type: Spontaneous
  Country: US (occurrence: US)
  Receive Date: 20161031
  Receipt Date: 20161031
  Transmission Date: 20170207
  Serious: No
  Sender: FDA-Public Use
  Company Number: US-JAZZ-2016-US-016457

PATIENT
  Sex: Female

DRUGS (13)
  1. XYREM [Suspect]
     Active Substance: SODIUM OXYBATE
     Dosage: 4.5 G, BID
     Route: 048
     Dates: start: 201208
  2. DICLOFENAC [Suspect]
     Active Substance: DICLOFENAC
     Indication: INTERVERTEBRAL DISC DISORDER
     Dosage: UNKNOWN DOSE
     Dates: start: 20160701
  3. CLONAZEPAM. [Concomitant]
     Active Substance: CLONAZEPAM
  4. METHYLPHENIDATE. [Concomitant]
     Active Substance: METHYLPHENIDATE
  5. DEPAKOTE [Concomitant]
     Active Substance: DIVALPROEX SODIUM
  6. GABAPENTIN. [Concomitant]
     Active Substance: GABAPENTIN
  7. PROVIGIL [Concomitant]
     Active Substance: MODAFINIL
  8. LEXAPRO [Concomitant]
     Active Substance: ESCITALOPRAM OXALATE
  9. XYREM [Suspect]
     Active Substance: SODIUM OXYBATE
     Dosage: DOSE ADJUSTMENTS
     Route: 048
     Dates: start: 200606, end: 201208
  10. ZOLOFT [Concomitant]
     Active Substance: SERTRALINE HYDROCHLORIDE
  11. XYREM [Suspect]
     Active Substance: SODIUM OXYBATE
     Indication: NARCOLEPSY
     Dosage: 2.25 G, BID
     Route: 048
     Dates: start: 200605, end: 200606
  12. ASPIRIN. [Concomitant]
     Active Substance: ASPIRIN
  13. XANAX [Concomitant]
     Active Substance: ALPRAZOLAM

REACTIONS (3)
  - Intervertebral disc disorder [Unknown]
  - Depression [Recovering/Resolving]
  - Drug ineffective [Unknown]
